FAERS Safety Report 8462719-5 (Version None)
Quarter: 2012Q2

REPORT INFORMATION
  Report Type: 
  Country: None (occurrence: None)
  Receive Date: 20120619
  Receipt Date: 20120619
  Transmission Date: 20120825
  Serious: Yes (Life-Threatening, Other)
  Sender: FDA-Public Use
  Company Number: None

PATIENT
  Age: 67 Year
  Sex: Female
  Weight: 60.782 kg

DRUGS (1)
  1. RECLAST [Suspect]

REACTIONS (4)
  - INFLUENZA LIKE ILLNESS [None]
  - FEELING COLD [None]
  - PYREXIA [None]
  - PAIN [None]
